FAERS Safety Report 17528848 (Version 2)
Quarter: 2020Q1

REPORT INFORMATION
  Report Type: Spontaneous
  Country: US (occurrence: US)
  Receive Date: 20200311
  Receipt Date: 20200311
  Transmission Date: 20200409
  Serious: No
  Sender: FDA-Public Use
  Company Number: US-IBSA PHARMA-TSO-2019-0150

PATIENT
  Age: 62 Year
  Sex: Female

DRUGS (4)
  1. DEXILANT [Concomitant]
     Active Substance: DEXLANSOPRAZOLE
     Indication: GASTROOESOPHAGEAL REFLUX DISEASE
     Dosage: AS NEEDED
     Route: 048
  2. TIROSINT-SOL [Suspect]
     Active Substance: LEVOTHYROXINE SODIUM
     Indication: HYPOTHYROIDISM
     Dosage: 88MCG/ML ONE DAY PER WEEK
     Route: 048
     Dates: start: 201904, end: 201912
  3. TIROSINT-SOL [Suspect]
     Active Substance: LEVOTHYROXINE SODIUM
     Indication: HYPOTHYROIDISM
     Dosage: 112MCG/ML
     Route: 048
     Dates: start: 20191212
  4. TIROSINT-SOL [Suspect]
     Active Substance: LEVOTHYROXINE SODIUM
     Indication: HYPOTHYROIDISM
     Dosage: 100MCG/ML
     Route: 048
     Dates: start: 201904, end: 201912

REACTIONS (9)
  - Malaise [Unknown]
  - Taste disorder [Unknown]
  - Drug ineffective [Unknown]
  - Gastrooesophageal reflux disease [Unknown]
  - Zinc deficiency [Unknown]
  - Malaise [Unknown]
  - Dysgeusia [Recovering/Resolving]
  - Hyperthyroidism [Unknown]
  - Hypothyroidism [Unknown]

NARRATIVE: CASE EVENT DATE: 201904
